FAERS Safety Report 5088653-9 (Version None)
Quarter: 2006Q3

REPORT INFORMATION
  Report Type: 
  Country: None (occurrence: None)
  Receive Date: 20060822
  Receipt Date: 20060728
  Transmission Date: 20061208
  Serious: Yes (Death, Hospitalization)
  Sender: FDA-Public Use
  Company Number: 2006US002887

PATIENT
  Age: 80 Year
  Sex: Male
  Weight: 57 kg

DRUGS (6)
  1. LEUCOVORIN CALCIUM [Suspect]
     Indication: BILIARY NEOPLASM
     Dosage: 25 MG/M2, QDX5, INTRAVENOUS
     Route: 042
     Dates: start: 20060306, end: 20060310
  2. FLUOROURACIL [Suspect]
     Indication: BILIARY NEOPLASM
     Dosage: 375 MG/M2, QDX5, IV BOLUS
     Route: 040
     Dates: start: 20060306, end: 20060310
  3. DOXAZOSIN (DOXAZOSIN) [Concomitant]
  4. OXYCODONE (OXYCODONE) [Concomitant]
  5. REGLAN [Concomitant]
  6. BMX (BENADRYL, MAALOX, XYLOACINE (MIXTURE) [Concomitant]

REACTIONS (9)
  - ANAEMIA [None]
  - ASTHENIA [None]
  - DEHYDRATION [None]
  - DISEASE PROGRESSION [None]
  - GENERAL PHYSICAL HEALTH DETERIORATION [None]
  - HYPOKALAEMIA [None]
  - HYPONATRAEMIA [None]
  - MUCOSAL INFLAMMATION [None]
  - ORAL INTAKE REDUCED [None]
